FAERS Safety Report 8987656 (Version 1)
Quarter: 2012Q4

REPORT INFORMATION
  Report Type: 
  Country: FR (occurrence: FR)
  Receive Date: 20121227
  Receipt Date: 20121227
  Transmission Date: 20130627
  Serious: Yes (Other)
  Sender: FDA-Public Use
  Company Number: FR-ABBOTT-12P-056-1026510-00

PATIENT
  Age: 51 Year
  Sex: Male

DRUGS (1)
  1. DEPAKOTE [Suspect]
     Indication: AFFECTIVE DISORDER
     Route: 048
     Dates: start: 2010

REACTIONS (2)
  - Pseudolymphoma [Unknown]
  - Skin lesion [Unknown]
